FAERS Safety Report 12637856 (Version 2)
Quarter: 2016Q3

REPORT INFORMATION
  Report Type: Spontaneous
  Country: US (occurrence: US)
  Receive Date: 20160809
  Receipt Date: 20160824
  Transmission Date: 20161109
  Serious: Yes (Hospitalization, Other)
  Sender: FDA-Public Use
  Company Number: US-JNJFOC-20160802464

PATIENT
  Sex: Male
  Weight: 90.72 kg

DRUGS (3)
  1. INVEGA SUSTENNA [Suspect]
     Active Substance: PALIPERIDONE PALMITATE
     Indication: BIPOLAR I DISORDER
     Route: 030
  2. INVEGA SUSTENNA [Suspect]
     Active Substance: PALIPERIDONE PALMITATE
     Indication: BIPOLAR I DISORDER
     Route: 030
  3. INVEGA SUSTENNA [Suspect]
     Active Substance: PALIPERIDONE PALMITATE
     Indication: BIPOLAR I DISORDER
     Route: 030

REACTIONS (7)
  - Feeling abnormal [Unknown]
  - Hospitalisation [Not Recovered/Not Resolved]
  - Mania [Unknown]
  - Product use issue [Unknown]
  - Headache [Unknown]
  - Heart rate decreased [Unknown]
  - Off label use [Unknown]
